FAERS Safety Report 9754370 (Version 5)
Quarter: 2018Q1

REPORT INFORMATION
  Report Type: Spontaneous
  Country: US (occurrence: US)
  Receive Date: 20131213
  Receipt Date: 20180306
  Transmission Date: 20180509
  Serious: No
  Sender: FDA-Public Use
  Company Number: US-PFIZER INC-2013355864

PATIENT
  Age: 43 Year
  Sex: Female
  Weight: 168 kg

DRUGS (6)
  1. METHOTREXATE. [Concomitant]
     Active Substance: METHOTREXATE
     Indication: RHEUMATOID ARTHRITIS
     Dosage: 0.8 MG, WEEKLY
     Dates: start: 2000
  2. PILOCARPINE. [Concomitant]
     Active Substance: PILOCARPINE
     Indication: SJOGREN^S SYNDROME
     Dosage: UNK
  3. XELJANZ [Suspect]
     Active Substance: TOFACITINIB CITRATE
     Dosage: 5 MG, 2X/DAY (ONE TABLET IN THE MORNING AND ONE AT NIGHT)
     Route: 048
     Dates: start: 2014
  4. GABAPENTIN. [Concomitant]
     Active Substance: GABAPENTIN
     Indication: FIBROMYALGIA
     Dosage: 800 MG, AS NEEDED (3 TIMES A DAY, IF NEEDED)
  5. FOLIC ACID. [Concomitant]
     Active Substance: FOLIC ACID
     Dosage: UNK
  6. XELJANZ [Suspect]
     Active Substance: TOFACITINIB CITRATE
     Indication: RHEUMATOID ARTHRITIS
     Dosage: 5 MG, TWICE DAILY
     Dates: start: 20131122

REACTIONS (5)
  - Drug ineffective [Unknown]
  - Hand deformity [Not Recovered/Not Resolved]
  - Sinus headache [Unknown]
  - Paranasal sinus discomfort [Unknown]
  - Lip infection [Unknown]

NARRATIVE: CASE EVENT DATE: 201311
